FAERS Safety Report 8954880 (Version 1)
Quarter: 2012Q4

REPORT INFORMATION
  Report Type: 
  Country: CO (occurrence: CO)
  Receive Date: 20121207
  Receipt Date: 20121207
  Transmission Date: 20130627
  Serious: No
  Sender: FDA-Public Use
  Company Number: CO-VERTEX PHARMACEUTICALS INC.-2012-025818

PATIENT
  Sex: Female

DRUGS (3)
  1. INCIVO [Suspect]
     Indication: HEPATITIS C
     Dosage: Dosage Form: Tablet
     Route: 048
  2. RIBAVIRIN [Concomitant]
     Dosage: Dosage Form: Unknown
     Route: 065
  3. INTERFERON ALFA [Concomitant]
     Dosage: Dosage Form: Unknown
     Route: 065

REACTIONS (3)
  - Skin disorder [Unknown]
  - Rash [Unknown]
  - Pruritus [Unknown]
